FAERS Safety Report 14068436 (Version 3)
Quarter: 2017Q4

REPORT INFORMATION
  Report Type: Spontaneous
  Country: CZ (occurrence: CZ)
  Receive Date: 20171010
  Receipt Date: 20171030
  Transmission Date: 20180321
  Serious: Yes (Death, Hospitalization, Other)
  Sender: FDA-Public Use
  Company Number: CZ-SA-2017SA193471

PATIENT
  Sex: Male
  Weight: 96.5 kg

DRUGS (17)
  1. GRANISETRON [Suspect]
     Active Substance: GRANISETRON
     Indication: RECTOSIGMOID CANCER
     Dosage: FOR 10-15 MINUTES?1 AMPOULE
     Route: 042
     Dates: start: 20170608, end: 20170610
  2. MILURIT [Concomitant]
     Active Substance: ALLOPURINOL
     Route: 065
  3. FLUOROURACIL. [Suspect]
     Active Substance: FLUOROURACIL
     Indication: RECTOSIGMOID CANCER
     Dosage: ALSO, 1/1F FLUOROURACIL 4800MG I.V. BY CONTINUAL INFUSION THROUGH PERFUSORE
     Route: 042
     Dates: start: 20170608, end: 20170610
  4. BLOXAZOC [Concomitant]
     Route: 065
  5. CALCIUM FOLINATE [Suspect]
     Active Substance: LEUCOVORIN CALCIUM
     Indication: RECTOSIGMOID CANCER
     Route: 042
     Dates: start: 20170608, end: 20170610
  6. ALGIFEN [Concomitant]
     Indication: PAIN
     Route: 065
  7. ORTANOL [Concomitant]
     Active Substance: OMEPRAZOLE
     Route: 065
  8. MYOZYME [Suspect]
     Active Substance: ALGLUCOSIDASE ALFA
     Indication: GLYCOGEN STORAGE DISEASE TYPE II
     Dosage: DOSE: 39 AMPOULES A 50MG?TOTALLY 105 INFUSIONS OF MYOZYME WERE ADMINISTERED,
     Route: 041
     Dates: start: 20130314, end: 20170704
  9. DEXAMED (DEXAMETHASONE SODIUM PHOSPHATE) [Suspect]
     Active Substance: DEXAMETHASONE SODIUM PHOSPHATE
     Indication: RECTOSIGMOID CANCER
     Dosage: FOR 10-15 MINUTES
     Route: 042
     Dates: start: 20170608, end: 20170610
  10. OXALIPLATIN. [Suspect]
     Active Substance: OXALIPLATIN
     Indication: RECTOSIGMOID CANCER
     Dosage: GLUCOSIS 5% 500ML + OXALIPLATIN MYLAN 170MG I.V. FOR 2 HOURS, TOGETHER WITH FOLINATE
     Route: 042
     Dates: start: 20170525
  11. IBALGIN [Concomitant]
     Active Substance: IBUPROFEN
     Indication: PAIN
     Route: 065
  12. GRANISETRON [Suspect]
     Active Substance: GRANISETRON
     Indication: RECTOSIGMOID CANCER
     Dosage: FOR 10-15 MINUTES?1 AMPOULE
     Route: 042
     Dates: start: 20170525
  13. OXALIPLATIN. [Suspect]
     Active Substance: OXALIPLATIN
     Indication: RECTOSIGMOID CANCER
     Dosage: GLUCOSIS 5% 500ML + OXALIPLATIN MYLAN 170MG I.V. FOR 2 HOURS, TOGETHER WITH FOLINATE
     Route: 042
     Dates: start: 20170608, end: 20170610
  14. 5-FU [Suspect]
     Active Substance: FLUOROURACIL
     Indication: RECTOSIGMOID CANCER
     Route: 040
     Dates: start: 20170525
  15. CALCIUM FOLINATE [Suspect]
     Active Substance: LEUCOVORIN CALCIUM
     Indication: RECTOSIGMOID CANCER
     Route: 042
     Dates: start: 20170525
  16. FLUOROURACIL. [Suspect]
     Active Substance: FLUOROURACIL
     Indication: RECTOSIGMOID CANCER
     Dosage: ALSO, 1/1F FLUOROURACIL 4800MG I.V. BY CONTINUAL INFUSION THROUGH PERFUSORE
     Route: 042
     Dates: start: 20170525
  17. DEXAMED (DEXAMETHASONE SODIUM PHOSPHATE) [Suspect]
     Active Substance: DEXAMETHASONE SODIUM PHOSPHATE
     Indication: RECTOSIGMOID CANCER
     Dosage: FOR 10-15 MINUTES
     Route: 042
     Dates: start: 20170525

REACTIONS (22)
  - Supraventricular tachycardia [Recovered/Resolved]
  - Asthenia [Recovered/Resolved]
  - Decreased appetite [Unknown]
  - Hot flush [Unknown]
  - Portal hypertension [None]
  - Sudden death [None]
  - Weight decreased [Unknown]
  - Diarrhoea [Unknown]
  - Rectosigmoid cancer [Fatal]
  - Ventricular extrasystoles [Unknown]
  - Nausea [Unknown]
  - Renal cyst [None]
  - Chills [Unknown]
  - Nasopharyngitis [Unknown]
  - Anaemia [None]
  - Metastases to liver [Fatal]
  - Hypoproteinaemia [Unknown]
  - Abdominal pain [Fatal]
  - Hepatosplenomegaly [Fatal]
  - Mineral deficiency [None]
  - Palpitations [Recovered/Resolved]
  - Influenza like illness [Unknown]

NARRATIVE: CASE EVENT DATE: 201703
